FAERS Safety Report 21313980 (Version 1)
Quarter: 2022Q3

REPORT INFORMATION
  Report Type: Spontaneous
  Country: US (occurrence: None)
  Receive Date: 20220909
  Receipt Date: 20220909
  Transmission Date: 20221027
  Serious: Yes (Hospitalization)
  Sender: FDA-Public Use
  Company Number: None

PATIENT
  Age: 40 Year
  Sex: Male
  Weight: 101 kg

DRUGS (1)
  1. NIVOLUMAB [Suspect]
     Active Substance: NIVOLUMAB

REACTIONS (2)
  - Non-cardiac chest pain [None]
  - Inadequate analgesia [None]

NARRATIVE: CASE EVENT DATE: 20220907
